FAERS Safety Report 13257084 (Version 1)
Quarter: 2017Q1

REPORT INFORMATION
  Report Type: Spontaneous
  Country: US (occurrence: US)
  Receive Date: 20170221
  Receipt Date: 20170221
  Transmission Date: 20170428
  Serious: No
  Sender: FDA-Public Use
  Company Number: US-ALLERGAN-1625146US

PATIENT
  Sex: Female

DRUGS (2)
  1. FLUOROMETHOLONE, 0.1% [Suspect]
     Active Substance: FLUOROMETHOLONE
     Indication: EYE IRRITATION
     Dosage: UNK, QD
     Route: 047
     Dates: start: 201512, end: 201602
  2. FLUOROMETHOLONE, 0.1% [Suspect]
     Active Substance: FLUOROMETHOLONE
     Indication: CONJUNCTIVITIS

REACTIONS (2)
  - Headache [Recovered/Resolved]
  - Off label use [Unknown]
